FAERS Safety Report 15398321 (Version 1)
Quarter: 2018Q3

REPORT INFORMATION
  Report Type: Report from Study
  Country: US (occurrence: US)
  Receive Date: 20180918
  Receipt Date: 20180918
  Transmission Date: 20181010
  Serious: Yes (Other)
  Sender: FDA-Public Use
  Company Number: US-MALLINCKRODT-T201803625

PATIENT
  Age: 34 Year
  Sex: Female

DRUGS (1)
  1. REPOSITORY CORTICOTROPIN INJECTION [Suspect]
     Active Substance: CORTICOTROPIN
     Indication: PULMONARY SARCOIDOSIS
     Dosage: 80 UNITS EVERY 72 HOURS
     Route: 058
     Dates: start: 201808, end: 201808

REACTIONS (7)
  - Skin lesion [Unknown]
  - Hyperhidrosis [Unknown]
  - Mood altered [Unknown]
  - Anaphylactic reaction [Unknown]
  - Peripheral swelling [Unknown]
  - Dizziness [Unknown]
  - Insomnia [Unknown]

NARRATIVE: CASE EVENT DATE: 201808
